FAERS Safety Report 10186015 (Version 2)
Quarter: 2014Q2

REPORT INFORMATION
  Report Type: Report from Study
  Country: JP (occurrence: JP)
  Receive Date: 20140521
  Receipt Date: 20140521
  Transmission Date: 20141212
  Serious: Yes (Life-Threatening, Other)
  Sender: FDA-Public Use
  Company Number: JP-CELGENEUS-087-50794-14011542

PATIENT
  Age: 68 Year
  Sex: Male
  Weight: 58 kg

DRUGS (27)
  1. VIDAZA [Suspect]
     Indication: MYELODYSPLASTIC SYNDROME
     Dosage: 75 MILLIGRAM/SQ. METER
     Route: 041
     Dates: start: 20110628, end: 2011
  2. VIDAZA [Suspect]
     Dosage: 75 MILLIGRAM/SQ. METER
     Route: 041
     Dates: start: 20110713, end: 20110719
  3. VIDAZA [Suspect]
     Dosage: 75 MILLIGRAM/SQ. METER
     Route: 041
     Dates: start: 20110815, end: 20110819
  4. VIDAZA [Suspect]
     Dosage: 75 MILLIGRAM/SQ. METER
     Route: 041
     Dates: start: 20111003, end: 20111007
  5. VIDAZA [Suspect]
     Dosage: 75 MILLIGRAM/SQ. METER
     Route: 041
     Dates: start: 20111107, end: 20111111
  6. VIDAZA [Suspect]
     Dosage: 75 MILLIGRAM/SQ. METER
     Route: 041
     Dates: start: 20111212, end: 20111215
  7. VIDAZA [Suspect]
     Dosage: 75 MILLIGRAM/SQ. METER
     Route: 041
     Dates: start: 20120202, end: 20120206
  8. SEROTONE [Concomitant]
     Indication: PRODUCT USED FOR UNKNOWN INDICATION
     Route: 065
     Dates: start: 20110713, end: 20110719
  9. SEROTONE [Concomitant]
     Route: 065
     Dates: start: 20110815, end: 20110819
  10. SEROTONE [Concomitant]
     Route: 065
     Dates: start: 20111003, end: 20111007
  11. SEROTONE [Concomitant]
     Route: 065
     Dates: start: 20111107, end: 20111111
  12. SEROTONE [Concomitant]
     Route: 065
     Dates: start: 20111212, end: 20111215
  13. SEROTONE [Concomitant]
     Route: 065
     Dates: start: 20110713, end: 20110719
  14. SEROTONE [Concomitant]
     Route: 065
     Dates: start: 20120102, end: 20120106
  15. SEROTONE [Concomitant]
     Route: 065
     Dates: start: 20120109, end: 20120309
  16. SAXIZON [Concomitant]
     Indication: PRODUCT USED FOR UNKNOWN INDICATION
     Route: 065
     Dates: start: 20110719, end: 20110720
  17. SAXIZON [Concomitant]
     Route: 065
     Dates: start: 20110829, end: 20110829
  18. SAXIZON [Concomitant]
     Route: 065
     Dates: start: 20111020, end: 20111020
  19. SAXIZON [Concomitant]
     Route: 065
     Dates: start: 20120321, end: 20120321
  20. GRAN [Concomitant]
     Indication: PRODUCT USED FOR UNKNOWN INDICATION
     Route: 065
     Dates: start: 20111114, end: 20111117
  21. GRAN [Concomitant]
     Route: 065
     Dates: start: 20111216, end: 20111228
  22. GRAN [Concomitant]
     Route: 065
     Dates: start: 20120123, end: 20120227
  23. GRAN [Concomitant]
     Route: 065
     Dates: start: 20120312, end: 20120328
  24. MAXIPIME [Concomitant]
     Indication: PRODUCT USED FOR UNKNOWN INDICATION
     Route: 065
     Dates: start: 20110730, end: 20110805
  25. MAXIPIME [Concomitant]
     Route: 065
     Dates: start: 20120124, end: 20120129
  26. PRODIF [Concomitant]
     Indication: PRODUCT USED FOR UNKNOWN INDICATION
     Route: 065
     Dates: start: 20120124, end: 20120127
  27. TEICOPLANIN [Concomitant]
     Indication: PRODUCT USED FOR UNKNOWN INDICATION
     Route: 065
     Dates: start: 20120129, end: 20120201

REACTIONS (5)
  - Neutrophil count decreased [Recovered/Resolved]
  - Neutrophil count decreased [Recovered/Resolved]
  - Neutrophil count decreased [Recovered/Resolved]
  - Neutrophil count decreased [Recovered/Resolved]
  - Febrile neutropenia [Recovered/Resolved]
